FAERS Safety Report 24095050 (Version 1)
Quarter: 2024Q3

REPORT INFORMATION
  Report Type: Spontaneous
  Country: US (occurrence: US)
  Receive Date: 20240716
  Receipt Date: 20240716
  Transmission Date: 20241017
  Serious: Yes (Other)
  Sender: ROCHE
  Company Number: US-ROCHE-10000020677

PATIENT
  Sex: Female

DRUGS (2)
  1. NUTROPIN AQ [Suspect]
     Active Substance: SOMATROPIN
     Indication: Pituitary tumour
     Route: 065
  2. NUTROPIN AQ [Suspect]
     Active Substance: SOMATROPIN
     Indication: Blood growth hormone decreased

REACTIONS (1)
  - Anaphylactic reaction [Not Recovered/Not Resolved]
